FAERS Safety Report 16660655 (Version 2)
Quarter: 2019Q3

REPORT INFORMATION
  Report Type: Spontaneous
  Country: US (occurrence: US)
  Receive Date: 20190802
  Receipt Date: 20190926
  Transmission Date: 20191004
  Serious: No
  Sender: FDA-Public Use
  Company Number: US-MYLANLABS-2019M1067751

PATIENT
  Sex: Male
  Weight: 113 kg

DRUGS (1)
  1. MUSE [Suspect]
     Active Substance: ALPROSTADIL
     Indication: ERECTILE DYSFUNCTION
     Dosage: UNK
     Route: 066

REACTIONS (6)
  - Penile pain [Unknown]
  - Feeling hot [Unknown]
  - Swelling [Unknown]
  - Penis disorder [Unknown]
  - Paraesthesia [Unknown]
  - Drug ineffective [Unknown]
